FAERS Safety Report 16269492 (Version 1)
Quarter: 2019Q2

REPORT INFORMATION
  Report Type: Spontaneous
  Country: US (occurrence: US)
  Receive Date: 20190503
  Receipt Date: 20190503
  Transmission Date: 20190711
  Serious: Yes (Other)
  Sender: FDA-Public Use
  Company Number: US-TEVA-2019-US-1044622

PATIENT
  Sex: Female

DRUGS (1)
  1. WARFARIN SODIUM. [Suspect]
     Active Substance: WARFARIN SODIUM

REACTIONS (4)
  - Clostridium difficile infection [Unknown]
  - Ill-defined disorder [Unknown]
  - International normalised ratio fluctuation [Unknown]
  - Vitamin D decreased [Unknown]
